FAERS Safety Report 6574273-3 (Version None)
Quarter: 2010Q1

REPORT INFORMATION
  Report Type: 
  Country: None (occurrence: None)
  Receive Date: 20100208
  Receipt Date: 20100127
  Transmission Date: 20100710
  Serious: Yes (Hospitalization, Disabling, Other)
  Sender: FDA-Public Use
  Company Number: JP-ELI_LILLY_AND_COMPANY-JP201002000647

PATIENT
  Age: 39 Year
  Sex: Male
  Weight: 37 kg

DRUGS (1)
  1. HUMALOG [Suspect]
     Indication: TYPE 2 DIABETES MELLITUS
     Route: 058

REACTIONS (2)
  - HYPOGLYCAEMIC ENCEPHALOPATHY [None]
  - INAPPROPRIATE ANTIDIURETIC HORMONE SECRETION [None]
